FAERS Safety Report 6123668-0 (Version None)
Quarter: 2009Q1

REPORT INFORMATION
  Report Type: 
  Country: None (occurrence: None)
  Receive Date: 20090319
  Receipt Date: 20090311
  Transmission Date: 20090719
  Serious: Yes (Other)
  Sender: FDA-Public Use
  Company Number: FI-JNJFOC-20090302756

PATIENT
  Age: 71 Year
  Sex: Male

DRUGS (7)
  1. RISPERDAL [Suspect]
     Route: 048
  2. RISPERDAL [Suspect]
     Indication: SCHIZOPHRENIA
     Route: 048
  3. COZAAR [Concomitant]
     Indication: HYPERTENSION
     Route: 065
  4. AMYLOIDIPIN [Concomitant]
     Route: 065
  5. SELOKEN ZOC [Concomitant]
     Route: 065
  6. PERSANTINE [Concomitant]
     Route: 065
  7. TENOX [Concomitant]
     Route: 065

REACTIONS (3)
  - AKATHISIA [None]
  - FALL [None]
  - PSYCHOTIC DISORDER [None]
